FAERS Safety Report 9603699 (Version 2)
Quarter: 2013Q4

REPORT INFORMATION
  Report Type: Report from Study
  Country: BR (occurrence: BR)
  Receive Date: 20131007
  Receipt Date: 20131016
  Transmission Date: 20140711
  Serious: Yes (Death, Other)
  Sender: FDA-Public Use
  Company Number: BR-GILEAD-2013-0084917

PATIENT
  Sex: 0

DRUGS (13)
  1. AMBRISENTAN [Suspect]
     Indication: PRODUCT USED FOR UNKNOWN INDICATION
     Dosage: 10MG PER DAY
     Dates: start: 20050816, end: 201308
  2. AMBRISENTAN [Suspect]
     Indication: PRODUCT USED FOR UNKNOWN INDICATION
  3. PAROXETINE [Concomitant]
  4. PARACETAMOL [Concomitant]
  5. OMEPRAZOLE [Concomitant]
  6. WARFARIN [Concomitant]
  7. PREDNISONE [Concomitant]
  8. FUROSEMIDE [Concomitant]
  9. SPIRONOLACTONE [Concomitant]
  10. CLONAZEPAM [Concomitant]
  11. PIPERACILLIN AND TAZOBACTAM [Concomitant]
  12. AZATHIOPRINE [Concomitant]
  13. VANCOMYCIN [Concomitant]

REACTIONS (4)
  - Cardiac arrest [Fatal]
  - Atrial fibrillation [Fatal]
  - Aortic stenosis [Fatal]
  - Connective tissue disorder [Fatal]
